FAERS Safety Report 8512395-8 (Version None)
Quarter: 2012Q2

REPORT INFORMATION
  Report Type: 
  Country: None (occurrence: None)
  Receive Date: 20120405
  Receipt Date: 20080729
  Transmission Date: 20120825
  Serious: No
  Sender: FDA-Public Use
  Company Number: PHEH2008US06886

PATIENT
  Age: 80 Year
  Sex: Male

DRUGS (1)
  1. RECLAST [Suspect]
     Dosage: 5MG/100ML ONCE A YEAR, INTRAVENOUS
     Route: 042

REACTIONS (1)
  - PAIN [None]
